FAERS Safety Report 4280382-4 (Version None)
Quarter: 2004Q1

REPORT INFORMATION
  Report Type: 
  Country: None (occurrence: None)
  Receive Date: 20040126
  Receipt Date: 20040114
  Transmission Date: 20041129
  Serious: Yes (Other)
  Sender: FDA-Public Use
  Company Number: 2004UW00775

PATIENT
  Sex: Male

DRUGS (2)
  1. FASLODEX [Suspect]
     Dosage: 250 MG ONCE IM
     Route: 030
     Dates: start: 20040114, end: 20040114
  2. ZOMETA [Concomitant]

REACTIONS (1)
  - MEDICATION ERROR [None]
